FAERS Safety Report 12295020 (Version 1)
Quarter: 2016Q2

REPORT INFORMATION
  Report Type: Spontaneous
  Country: US (occurrence: US)
  Receive Date: 20160422
  Receipt Date: 20160422
  Transmission Date: 20160815
  Serious: No
  Sender: FDA-Public Use
  Company Number: US-GLAXOSMITHKLINE-US2016047521

PATIENT
  Age: 69 Year
  Sex: Male

DRUGS (9)
  1. BREO ELLIPTA [Suspect]
     Active Substance: FLUTICASONE FUROATE\VILANTEROL TRIFENATATE
     Indication: CHRONIC OBSTRUCTIVE PULMONARY DISEASE
     Dosage: 1 PUFF(S), QD
     Route: 055
     Dates: start: 20160215
  2. BREO ELLIPTA [Suspect]
     Active Substance: FLUTICASONE FUROATE\VILANTEROL TRIFENATATE
     Indication: EMPHYSEMA
  3. ULORIC [Concomitant]
     Active Substance: FEBUXOSTAT
  4. TEKTURNA [Concomitant]
     Active Substance: ALISKIREN HEMIFUMARATE
  5. COQ 10 [Concomitant]
     Active Substance: UBIDECARENONE
  6. EFFIENT [Concomitant]
     Active Substance: PRASUGREL HYDROCHLORIDE
  7. SODIUM BICARBONATE. [Concomitant]
     Active Substance: SODIUM BICARBONATE
  8. FAMOTIDINE. [Concomitant]
     Active Substance: FAMOTIDINE
  9. CRESTOR [Concomitant]
     Active Substance: ROSUVASTATIN CALCIUM

REACTIONS (2)
  - Fatigue [Not Recovered/Not Resolved]
  - Nausea [Not Recovered/Not Resolved]

NARRATIVE: CASE EVENT DATE: 201603
